FAERS Safety Report 10473700 (Version 2)
Quarter: 2014Q4

REPORT INFORMATION
  Report Type: Spontaneous
  Country: FR (occurrence: None)
  Receive Date: 20140922
  Receipt Date: 20141006
  Transmission Date: 20150528
  Serious: Yes (Other)
  Sender: FDA-Public Use
  Company Number: 2014-20355

PATIENT
  Age: 86 Year
  Sex: Female

DRUGS (3)
  1. BETADINE (POVIDONE-IODINE) [Concomitant]
  2. EYLEA [Suspect]
     Active Substance: AFLIBERCEPT
     Indication: NEOVASCULAR AGE-RELATED MACULAR DEGENERATION
     Dosage: 1 DF, ONCE
     Dates: start: 20140306, end: 20140306
  3. OFLOXACIN. [Concomitant]
     Active Substance: OFLOXACIN

REACTIONS (2)
  - Retinal degeneration [None]
  - Visual acuity reduced [None]

NARRATIVE: CASE EVENT DATE: 20140612
